FAERS Safety Report 25707288 (Version 1)
Quarter: 2025Q3

REPORT INFORMATION
  Report Type: Spontaneous
  Country: US (occurrence: US)
  Receive Date: 20250820
  Receipt Date: 20250820
  Transmission Date: 20251021
  Serious: Yes (Other)
  Sender: Alpha Cognition
  Company Number: US-ALPHA COGNITION-2025-ZUN-00009

PATIENT

DRUGS (1)
  1. ZUNVEYL [Suspect]
     Active Substance: GALANTAMINE BENZOATE
     Indication: Product used for unknown indication
     Dosage: UNK UNK, BID
     Route: 065

REACTIONS (1)
  - Seizure [Unknown]
